FAERS Safety Report 10182740 (Version 1)
Quarter: 2014Q2

REPORT INFORMATION
  Report Type: Spontaneous
  Country: US (occurrence: None)
  Receive Date: 20140519
  Receipt Date: 20140519
  Transmission Date: 20141212
  Serious: Yes (Hospitalization)
  Sender: FDA-Public Use
  Company Number: None

PATIENT
  Age: 53 Year
  Sex: Male
  Weight: 71.6 kg

DRUGS (3)
  1. ESZOPICLONE [Suspect]
     Indication: INSOMNIA
     Route: 048
     Dates: start: 20130809, end: 20140228
  2. QUETIAPINE [Suspect]
     Indication: MAJOR DEPRESSION
     Route: 048
     Dates: start: 20140225, end: 20140226
  3. QUETIAPINE [Suspect]
     Indication: DRUG RESISTANCE
     Route: 048
     Dates: start: 20140225, end: 20140226

REACTIONS (3)
  - Confusional state [None]
  - Loss of consciousness [None]
  - Alcohol poisoning [None]
